FAERS Safety Report 10264760 (Version 2)
Quarter: 2014Q2

REPORT INFORMATION
  Report Type: Report from Study
  Country: BR (occurrence: BR)
  Receive Date: 20140627
  Receipt Date: 20140627
  Transmission Date: 20141212
  Serious: Yes (Hospitalization)
  Sender: FDA-Public Use
  Company Number: BR-SA-2014SA082281

PATIENT
  Age: 62 Year
  Sex: Male
  Weight: 68.6 kg

DRUGS (5)
  1. THYMOGLOBULINE [Suspect]
     Indication: RENAL TRANSPLANT
     Route: 042
     Dates: start: 20140522
  2. TACROLIMUS [Suspect]
     Indication: RENAL TRANSPLANT
     Dosage: EVERY MORNING
     Route: 048
     Dates: start: 20140606
  3. TACROLIMUS [Suspect]
     Indication: RENAL TRANSPLANT
     Dosage: EVERY NIGHT
     Route: 048
     Dates: start: 20140606
  4. EVEROLIMUS [Suspect]
     Indication: RENAL TRANSPLANT
     Route: 048
     Dates: start: 20140606
  5. VANCOMYCIN [Concomitant]
     Indication: PROPHYLAXIS
     Dates: start: 20140618, end: 20140619

REACTIONS (2)
  - Wound dehiscence [Recovered/Resolved]
  - Wound dehiscence [Recovered/Resolved]
